FAERS Safety Report 8345380-X (Version None)
Quarter: 2012Q2

REPORT INFORMATION
  Report Type: 
  Country: None (occurrence: None)
  Receive Date: 20120508
  Receipt Date: 20120423
  Transmission Date: 20120825
  Serious: Yes (Other)
  Sender: FDA-Public Use
  Company Number: US-ENDO PHARMACEUTICALS INC.-MSER20120042

PATIENT
  Sex: Female

DRUGS (2)
  1. MORPHINE SULFATE [Suspect]
     Route: 048
     Dates: start: 20120401
  2. MORPHINE SULFATE [Suspect]
     Indication: PAIN
     Route: 048
     Dates: start: 20120201, end: 20120401

REACTIONS (3)
  - DRUG SCREEN NEGATIVE [None]
  - DRUG INEFFECTIVE [None]
  - INTENTIONAL DRUG MISUSE [None]
